FAERS Safety Report 4746494-3 (Version None)
Quarter: 2005Q3

REPORT INFORMATION
  Report Type: 
  Country: None (occurrence: None)
  Receive Date: 20050815
  Receipt Date: 20050728
  Transmission Date: 20060218
  Serious: Yes (Other)
  Sender: FDA-Public Use
  Company Number: WAES 0508USA00916

PATIENT
  Age: 49 Year
  Sex: Male

DRUGS (6)
  1. COZAAR [Suspect]
     Indication: HYPERTENSION
     Dosage: 50 MG/DAILY, PO
     Route: 048
     Dates: start: 20010110
  2. ATENOLOL [Concomitant]
  3. CARDENALIN [Concomitant]
  4. URALYT [Concomitant]
  5. URINORM [Concomitant]
  6. ZOCOR [Concomitant]

REACTIONS (3)
  - HYPERTENSION [None]
  - HYPERURICAEMIA [None]
  - RHABDOMYOLYSIS [None]
